FAERS Safety Report 7670996-3 (Version None)
Quarter: 2011Q3

REPORT INFORMATION
  Report Type: 
  Country: None (occurrence: None)
  Receive Date: 20110809
  Receipt Date: 20110801
  Transmission Date: 20111222
  Serious: Yes (Hospitalization, Other)
  Sender: FDA-Public Use
  Company Number: US-BAYER-201021846NA

PATIENT
  Age: 41 Year
  Sex: Female
  Weight: 82.54 kg

DRUGS (7)
  1. YAZ [Suspect]
     Indication: CONTRACEPTION
     Dosage: AS USED DOSE: UNK
     Route: 048
     Dates: start: 20050101, end: 20090826
  2. DROSPIRENONE AND ETHINYL ESTRADIOL [Suspect]
     Indication: CONTRACEPTION
     Dosage: UNK
     Dates: start: 20050101, end: 20090826
  3. YASMIN [Suspect]
     Indication: CONTRACEPTION
     Dosage: UNK
     Dates: start: 20050101, end: 20090826
  4. SINGULAIR [Concomitant]
     Indication: ASTHMA
  5. POTASSIUM [Concomitant]
  6. IBUPROFEN [Concomitant]
  7. MAXAIR [Concomitant]
     Indication: ASTHMA

REACTIONS (3)
  - PAIN [None]
  - CHOLELITHIASIS [None]
  - BILIARY DYSKINESIA [None]
